FAERS Safety Report 6772116-6 (Version None)
Quarter: 2010Q2

REPORT INFORMATION
  Report Type: 
  Country: None (occurrence: None)
  Receive Date: 20100616
  Receipt Date: 20100609
  Transmission Date: 20101027
  Serious: Yes (Hospitalization)
  Sender: FDA-Public Use
  Company Number: B0650649A

PATIENT
  Sex: Male

DRUGS (2)
  1. AUGMENTIN '125' [Suspect]
     Dosage: 1G PER DAY
     Route: 048
     Dates: start: 20100406, end: 20100406
  2. IBRUPROFEN [Suspect]
     Dosage: 400MG PER DAY
     Route: 048
     Dates: start: 20100406, end: 20100406

REACTIONS (3)
  - DYSPNOEA [None]
  - NAUSEA [None]
  - TREMOR [None]
